FAERS Safety Report 4434941-6 (Version None)
Quarter: 2004Q3

REPORT INFORMATION
  Report Type: 
  Country: None (occurrence: None)
  Receive Date: 20040726
  Receipt Date: 20040309
  Transmission Date: 20050211
  Serious: No
  Sender: FDA-Public Use
  Company Number: US_0403101490

PATIENT
  Sex: Male

DRUGS (2)
  1. FORTEO [Suspect]
     Dates: start: 20040101
  2. FOSAMAX [Concomitant]

REACTIONS (3)
  - CORNEAL ABRASION [None]
  - IRITIS [None]
  - UVEITIS [None]
